FAERS Safety Report 25630578 (Version 1)
Quarter: 2025Q3

REPORT INFORMATION
  Report Type: Spontaneous
  Country: CN (occurrence: CN)
  Receive Date: 20250801
  Receipt Date: 20250801
  Transmission Date: 20251021
  Serious: Yes (Life-Threatening, Hospitalization)
  Sender: ROCHE
  Company Number: CN-CHEPLA-2025009128

PATIENT
  Age: 33 Year
  Sex: Female
  Weight: 45 kg

DRUGS (7)
  1. BEVACIZUMAB [Suspect]
     Active Substance: BEVACIZUMAB
     Indication: Colon cancer
     Route: 065
     Dates: start: 20250609
  2. CAPECITABINE [Suspect]
     Active Substance: CAPECITABINE
     Indication: Colon cancer
     Route: 048
     Dates: start: 20250715, end: 20250718
  3. CAPECITABINE [Suspect]
     Active Substance: CAPECITABINE
     Route: 048
     Dates: start: 20250609
  4. THIOTEPA [Suspect]
     Active Substance: THIOTEPA
     Indication: Colon cancer
     Dosage: APPROVAL NO. GYZZ H31020600; QD
     Route: 033
     Dates: start: 20250717, end: 20250717
  5. IRINOTECAN HYDROCHLORIDE [Suspect]
     Active Substance: IRINOTECAN HYDROCHLORIDE
     Indication: Colon cancer
     Route: 042
     Dates: start: 20250715, end: 20250715
  6. IRINOTECAN HYDROCHLORIDE [Suspect]
     Active Substance: IRINOTECAN HYDROCHLORIDE
     Route: 042
     Dates: start: 20250609
  7. CISPLATIN [Suspect]
     Active Substance: CISPLATIN
     Indication: Colon cancer
     Dosage: APPROVAL NO. GYZZ H20073653; QD
     Route: 033
     Dates: start: 20250715, end: 20250716

REACTIONS (1)
  - Myelosuppression [Recovering/Resolving]

NARRATIVE: CASE EVENT DATE: 20250721
